FAERS Safety Report 4707369-9 (Version None)
Quarter: 2005Q3

REPORT INFORMATION
  Report Type: 
  Country: None (occurrence: None)
  Receive Date: 20050701
  Receipt Date: 20050617
  Transmission Date: 20060218
  Serious: Yes (Hospitalization)
  Sender: FDA-Public Use
  Company Number: SUSI-2005-00494

PATIENT
  Age: 71 Year
  Sex: Male
  Weight: 86.1 kg

DRUGS (11)
  1. LANTHANUM CARBONATE (LANTHANUM CARBONATE) TABLET CHEWABLE [Suspect]
     Indication: HYPERPHOSPHATAEMIA
     Dosage: 1500 MG, 3X/DAY TID, ORAL
     Route: 048
     Dates: start: 20041101
  2. BISOPROLOL FUMARATE [Concomitant]
  3. NITREPRESS (NITRENDIPINE) [Concomitant]
  4. ATORVASTATIN CALCIUM [Concomitant]
  5. ALLOPURINOL [Concomitant]
  6. MAGNEMED IMAGENSIUM HYDROGEN APSPARTATE) [Concomitant]
  7. AQUAPHOR /CAN/ (PETROLATUM) [Concomitant]
  8. TOREM /GFR/(TORASEMIDE) [Concomitant]
  9. INSUMAN BASAL /NET/ (ISOPHANE INSULIN) [Concomitant]
  10. INSUMAN RAPID/ GFR/(INSULIN HUMAN) [Concomitant]
  11. CALCIUM ACETATE (CALCIUM ACETATE) [Concomitant]

REACTIONS (4)
  - GASTROINTESTINAL NECROSIS [None]
  - INTESTINAL ISCHAEMIA [None]
  - INTESTINAL OBSTRUCTION [None]
  - WRONG TECHNIQUE IN DRUG USAGE PROCESS [None]
